FAERS Safety Report 12901340 (Version 1)
Quarter: 2016Q4

REPORT INFORMATION
  Report Type: Spontaneous
  Country: AU (occurrence: AU)
  Receive Date: 20161101
  Receipt Date: 20161101
  Transmission Date: 20170207
  Serious: Yes (Other)
  Sender: FDA-Public Use
  Company Number: AU-009507513-1610AUS013899

PATIENT
  Age: 44 Year
  Sex: Female

DRUGS (6)
  1. HEPARIN [Concomitant]
     Active Substance: HEPARIN SODIUM
     Dosage: UNK
  2. POSACONAZOLE [Suspect]
     Active Substance: POSACONAZOLE
     Dosage: SERUM LEVEL: 1094 NG/ML, DOSE UNKNOWN
     Route: 048
  3. POSACONAZOLE [Suspect]
     Active Substance: POSACONAZOLE
     Indication: MUCORMYCOSIS
     Dosage: 300 MG, DAILY
     Route: 042
  4. CASPOFUNGIN ACETATE [Concomitant]
     Active Substance: CASPOFUNGIN ACETATE
     Indication: MUCORMYCOSIS
     Dosage: 50 MG, QD; CEASED DAY 18
     Route: 042
  5. POSACONAZOLE [Suspect]
     Active Substance: POSACONAZOLE
     Indication: MUCORMYCOSIS
     Dosage: ON DAY 6, 200 MG, 8 HOURLY
     Route: 048
  6. POSACONAZOLE [Suspect]
     Active Substance: POSACONAZOLE
     Dosage: ON DAY 40, 300 MG, DAILY
     Route: 048

REACTIONS (1)
  - Adrenal insufficiency [Unknown]
